FAERS Safety Report 9167656 (Version 2)
Quarter: 2013Q1

REPORT INFORMATION
  Report Type: Spontaneous
  Country: BR (occurrence: BR)
  Receive Date: 20130318
  Receipt Date: 20130320
  Transmission Date: 20140127
  Serious: Yes (Hospitalization, Other)
  Sender: FDA-Public Use
  Company Number: PHHY2013BR013067

PATIENT
  Age: 51 Year
  Sex: Male

DRUGS (2)
  1. DIOVAN HCT [Suspect]
     Indication: HYPERTENSION
     Dosage: 1 DF, (80/12.5 MG), A DAY
     Route: 048
     Dates: end: 201210
  2. DIOVAN HCT [Suspect]
     Dosage: 1 (160/12.5 MG)
     Dates: start: 201210

REACTIONS (6)
  - Myocardial infarction [Unknown]
  - Angina pectoris [Unknown]
  - Blood pressure increased [Recovering/Resolving]
  - Nervousness [Unknown]
  - Dizziness [Not Recovered/Not Resolved]
  - Feeling abnormal [Unknown]
